FAERS Safety Report 8508605-3 (Version None)
Quarter: 2012Q3

REPORT INFORMATION
  Report Type: 
  Country: None (occurrence: None)
  Receive Date: 20120713
  Receipt Date: 20120710
  Transmission Date: 20120928
  Serious: No
  Sender: FDA-Public Use
  Company Number: US-PFIZER INC-2012166334

PATIENT
  Sex: Female
  Weight: 63.492 kg

DRUGS (2)
  1. COZAAR [Concomitant]
     Indication: HYPERTENSION
     Dosage: 10 MG, 2X/DAY
  2. IBUPROFEN (ADVIL) [Suspect]
     Indication: FIBROMYALGIA
     Dosage: 200 MG, 3X/DAY
     Route: 048
     Dates: start: 20120601, end: 20120601

REACTIONS (2)
  - SLEEP DISORDER [None]
  - DRY MOUTH [None]
